FAERS Safety Report 8385946-4 (Version None)
Quarter: 2012Q2

REPORT INFORMATION
  Report Type: 
  Country: None (occurrence: None)
  Receive Date: 20120523
  Receipt Date: 20120514
  Transmission Date: 20120825
  Serious: Yes (Other)
  Sender: FDA-Public Use
  Company Number: 2012SP025508

PATIENT
  Age: 75 Year
  Sex: Female

DRUGS (1)
  1. VECURONIUM BROMIDE [Suspect]
     Indication: NEUROMUSCULAR BLOCKING THERAPY
     Dosage: IV
     Route: 042

REACTIONS (2)
  - ANAPHYLACTOID SHOCK [None]
  - HYPOXIC-ISCHAEMIC ENCEPHALOPATHY [None]
